FAERS Safety Report 8014746-X (Version None)
Quarter: 2011Q4

REPORT INFORMATION
  Report Type: 
  Country: None (occurrence: None)
  Receive Date: 20111229
  Receipt Date: 20111219
  Transmission Date: 20120403
  Serious: Yes (Death, Other)
  Sender: FDA-Public Use
  Company Number: US-PFIZER INC-2011310463

PATIENT
  Age: 40 Year
  Sex: Female

DRUGS (11)
  1. OMEPRAZOLE [Suspect]
     Dosage: UNK
     Route: 048
  2. DEXTROAMPHETAMINE [Suspect]
     Dosage: UNK
     Route: 048
  3. CLONIDINE [Suspect]
     Dosage: UNK
     Route: 048
  4. GABAPENTIN [Suspect]
     Dosage: UNK
     Route: 048
  5. BUPROPION HCL [Suspect]
     Dosage: UNK
     Route: 048
  6. QUETIAPINE [Suspect]
     Dosage: UNK
     Route: 048
  7. CLOZAPINE [Suspect]
     Dosage: UNK
     Route: 048
  8. CLONAZEPAM [Suspect]
     Dosage: UNK
     Route: 048
  9. CYCLOBENZAPRINE [Suspect]
     Dosage: UNK
     Route: 048
  10. DESVENLAFAXINE SUCCINATE MONOHYDRATE [Suspect]
     Dosage: UNK
     Route: 048
  11. AMPHETAMINES [Suspect]
     Dosage: UNK
     Route: 048

REACTIONS (1)
  - COMPLETED SUICIDE [None]
